FAERS Safety Report 6097234-X (Version None)
Quarter: 2009Q1

REPORT INFORMATION
  Report Type: 
  Country: None (occurrence: None)
  Receive Date: 20090227
  Receipt Date: 20090216
  Transmission Date: 20090719
  Serious: Yes (Hospitalization)
  Sender: FDA-Public Use
  Company Number: B0560197A

PATIENT
  Age: 46 Year

DRUGS (2)
  1. ARIXTRA [Suspect]
     Dosage: 1INJ PER DAY
     Route: 058
     Dates: start: 20080905, end: 20080915
  2. PREVISCAN [Suspect]
     Route: 048
     Dates: start: 20080906, end: 20080917

REACTIONS (3)
  - ERYTHEMA [None]
  - PRURITUS [None]
  - URTICARIA [None]
